FAERS Safety Report 5518346-2 (Version None)
Quarter: 2007Q4

REPORT INFORMATION
  Report Type: 
  Country: None (occurrence: None)
  Receive Date: 20071115
  Receipt Date: 20071031
  Transmission Date: 20080405
  Serious: Yes (Hospitalization)
  Sender: FDA-Public Use
  Company Number: DE-ROCHE-484621

PATIENT
  Age: 53 Year
  Sex: Male

DRUGS (3)
  1. MYCOPHENOLATE MOFETIL [Suspect]
     Route: 042
     Dates: start: 20070201
  2. FK506 [Suspect]
     Route: 048
     Dates: start: 20070201
  3. HYDROCORTISON [Concomitant]

REACTIONS (1)
  - INTRA-ABDOMINAL HAEMATOMA [None]
